FAERS Safety Report 7436270-5 (Version None)
Quarter: 2011Q2

REPORT INFORMATION
  Report Type: 
  Country: None (occurrence: None)
  Receive Date: 20110426
  Receipt Date: 20110411
  Transmission Date: 20111010
  Serious: Yes (Hospitalization)
  Sender: FDA-Public Use
  Company Number: GB-MYLANLABS-2011S1007817

PATIENT
  Age: 72 Year
  Sex: Female

DRUGS (4)
  1. NIFEDIPINE [Concomitant]
     Indication: HYPERTENSION
  2. DICLOFENAC [Suspect]
     Indication: OSTEOARTHRITIS
  3. DOXAZOSIN [Concomitant]
     Indication: HYPERTENSION
  4. LISINOPRIL [Concomitant]
     Indication: HYPERTENSION

REACTIONS (2)
  - INTESTINAL ULCER [None]
  - SMALL INTESTINAL OBSTRUCTION [None]
